FAERS Safety Report 24695737 (Version 1)
Quarter: 2024Q4

REPORT INFORMATION
  Report Type: Report from Study
  Country: SE (occurrence: SE)
  Receive Date: 20241204
  Receipt Date: 20241204
  Transmission Date: 20250114
  Serious: Yes (Other)
  Sender: AUROBINDO
  Company Number: SE-AUROBINDO-AUR-APL-2024-058228

PATIENT
  Age: 33 Year
  Sex: Female

DRUGS (1)
  1. SERTRALINE [Suspect]
     Active Substance: SERTRALINE HYDROCHLORIDE
     Indication: Product used for unknown indication
     Dosage: UNK, (THE DOSAGE OF SERTRALINE AT THE TIME OF DIAGNOSIS RANGED FROM 100 TO 200 MG)
     Route: 065

REACTIONS (7)
  - Multiple acyl-coenzyme A dehydrogenase deficiency [Recovered/Resolved]
  - Muscular weakness [Recovered/Resolved]
  - Myalgia [Recovered/Resolved]
  - Muscle fatigue [Recovered/Resolved]
  - Sensory disturbance [Recovered/Resolved]
  - Peripheral sensory neuropathy [Recovered/Resolved]
  - Myopathy [Recovered/Resolved]
